FAERS Safety Report 4696584-9 (Version None)
Quarter: 2005Q2

REPORT INFORMATION
  Report Type: 
  Country: None (occurrence: None)
  Receive Date: 20050620
  Receipt Date: 20050328
  Transmission Date: 20051028
  Serious: Yes (Other)
  Sender: FDA-Public Use
  Company Number: 200512544US

PATIENT
  Age: 33 Year
  Sex: Male

DRUGS (5)
  1. LANTUS [Suspect]
     Indication: DIABETES MELLITUS INSULIN-DEPENDENT
     Dosage: 26 U QAM INJ
  2. HUMALOG [Concomitant]
  3. COZAAR [Concomitant]
  4. SYNTHROID [Concomitant]
  5. SIMVASTATIN [Concomitant]

REACTIONS (2)
  - HYPERGLYCAEMIA [None]
  - HYPOGLYCAEMIC COMA [None]
